FAERS Safety Report 16004332 (Version 1)
Quarter: 2019Q1

REPORT INFORMATION
  Report Type: Spontaneous
  Country: US (occurrence: US)
  Receive Date: 20190225
  Receipt Date: 20190225
  Transmission Date: 20190418
  Serious: Yes (Other)
  Sender: FDA-Public Use
  Company Number: None

PATIENT
  Age: 12 Year
  Sex: Male
  Weight: 74.25 kg

DRUGS (3)
  1. CONCERTA 18MG [Concomitant]
  2. METHYLPHENIDAT OSM ER 18MG TRI GENERIC FOR CONCERTA 18MG [Suspect]
     Active Substance: METHYLPHENIDATE HYDROCHLORIDE
     Indication: ATTENTION DEFICIT/HYPERACTIVITY DISORDER
     Dosage: ?          QUANTITY:1 TABLET(S);?
     Route: 048
     Dates: start: 20190210, end: 20190214
  3. CLONIDINE. [Concomitant]
     Active Substance: CLONIDINE

REACTIONS (8)
  - Insomnia [None]
  - Depression [None]
  - Emotional disorder [None]
  - Headache [None]
  - Disturbance in attention [None]
  - Abnormal behaviour [None]
  - Personality change [None]
  - Product substitution issue [None]

NARRATIVE: CASE EVENT DATE: 20190210
